FAERS Safety Report 12889266 (Version 1)
Quarter: 2016Q4

REPORT INFORMATION
  Report Type: Spontaneous
  Country: US (occurrence: US)
  Receive Date: 20161027
  Receipt Date: 20161027
  Transmission Date: 20170207
  Serious: No
  Sender: FDA-Public Use
  Company Number: US-BAYER-2016-201434

PATIENT
  Age: 56 Year
  Sex: Female

DRUGS (1)
  1. CLIMARA [Suspect]
     Active Substance: ESTRADIOL
     Dosage: 0.075 MG, CONT
     Route: 062

REACTIONS (6)
  - Product packaging issue [None]
  - Product adhesion issue [Not Recovered/Not Resolved]
  - Product quality issue [None]
  - Device material issue [None]
  - Device use issue [None]
  - Therapy cessation [Recovered/Resolved]

NARRATIVE: CASE EVENT DATE: 20161017
